FAERS Safety Report 23242990 (Version 2)
Quarter: 2023Q4

REPORT INFORMATION
  Report Type: Report from Study
  Country: US (occurrence: US)
  Receive Date: 20231129
  Receipt Date: 20231130
  Transmission Date: 20240109
  Serious: Yes (Death, Hospitalization)
  Sender: FDA-Public Use
  Company Number: US-ABBVIE-5331838

PATIENT
  Sex: Male
  Weight: 51 kg

DRUGS (7)
  1. VENCLEXTA [Suspect]
     Active Substance: VENETOCLAX
     Indication: Thrombocytopenia
     Dosage: FORM STRENGTH: 100 MG?LAST ADMIN DATE: 2023
     Route: 048
     Dates: start: 20230630
  2. VENCLEXTA [Suspect]
     Active Substance: VENETOCLAX
     Indication: Thrombocytopenia
     Dosage: FORM STRENGTH: 100 MG
     Route: 048
  3. VENCLEXTA [Suspect]
     Active Substance: VENETOCLAX
     Indication: Thrombocytopenia
     Dosage: FORM STRENGTH: 100 MG, TAKE 1 TABLET DAILY FOR 14 DAYS EVERY 28 DAY
     Route: 048
  4. VENCLEXTA [Suspect]
     Active Substance: VENETOCLAX
     Indication: Thrombocytopenia
     Dosage: FORM STRENGTH: 100 MG, TAKE 1 TABLET BY MOUTH DAILY
     Route: 048
     Dates: start: 20230828, end: 20230917
  5. VANCOMYCIN [Concomitant]
     Active Substance: VANCOMYCIN
     Indication: Product used for unknown indication
     Dosage: 125MG CAPSULES PO
     Route: 048
     Dates: start: 20231122
  6. HYDREA [Concomitant]
     Active Substance: HYDROXYUREA
     Indication: Product used for unknown indication
     Dosage: WERE ON HOLD UNTIL THE DOCTOR SAID TO RESTART
     Route: 048
  7. COREG [Concomitant]
     Active Substance: CARVEDILOL
     Indication: Product used for unknown indication
     Dosage: 3.125 MG TABLET ON HOLD DUE TO LOW BLOOD PRESSURE
     Route: 048

REACTIONS (10)
  - Haemorrhage [Fatal]
  - Off label use [Unknown]
  - Bacteraemia [Fatal]
  - Acute myeloid leukaemia [Fatal]
  - Multiple organ dysfunction syndrome [Fatal]
  - Febrile neutropenia [Fatal]
  - Clostridial sepsis [Fatal]
  - Hypotension [Unknown]
  - Septic coagulopathy [Fatal]
  - Clostridium difficile colitis [Fatal]

NARRATIVE: CASE EVENT DATE: 20230101
